FAERS Safety Report 18080814 (Version 1)
Quarter: 2020Q3

REPORT INFORMATION
  Report Type: Spontaneous
  Country: CA (occurrence: CA)
  Receive Date: 20200728
  Receipt Date: 20200728
  Transmission Date: 20201103
  Serious: Yes (Hospitalization)
  Sender: FDA-Public Use
  Company Number: CA-TEVA-2020-CA-1805763

PATIENT
  Age: 62 Year
  Sex: Male

DRUGS (1)
  1. ATENOLOL TABLETS, BP [Suspect]
     Active Substance: ATENOLOL
     Indication: HYPERTENSION
     Route: 048

REACTIONS (2)
  - Bradycardia [Recovered/Resolved]
  - Bundle branch block right [Recovered/Resolved]
